FAERS Safety Report 25116350 (Version 6)
Quarter: 2025Q3

REPORT INFORMATION
  Report Type: Spontaneous
  Country: EU (occurrence: EU)
  Receive Date: 20250325
  Receipt Date: 20250918
  Transmission Date: 20251020
  Serious: No
  Sender: NOVARTIS
  Company Number: EU-002147023-NVSC2025FR046806

PATIENT
  Age: 31 Year
  Sex: Female
  Weight: 58 kg

DRUGS (3)
  1. KESIMPTA [Suspect]
     Active Substance: OFATUMUMAB
     Indication: Multiple sclerosis
     Route: 058
     Dates: start: 20231016, end: 20240213
  2. KESIMPTA [Suspect]
     Active Substance: OFATUMUMAB
     Route: 058
     Dates: start: 20240527, end: 20240813
  3. KESIMPTA [Suspect]
     Active Substance: OFATUMUMAB
     Route: 065
     Dates: start: 20250731

REACTIONS (4)
  - Maternal exposure during pregnancy [Unknown]
  - Delivery [Unknown]
  - Normal newborn [Unknown]
  - Maternal exposure during breast feeding [Unknown]

NARRATIVE: CASE EVENT DATE: 20250522
